FAERS Safety Report 9230251 (Version 1)
Quarter: 2013Q2

REPORT INFORMATION
  Report Type: Spontaneous
  Country: US (occurrence: None)
  Receive Date: 20130411
  Receipt Date: 20130411
  Transmission Date: 20140414
  Serious: Yes (Other)
  Sender: FDA-Public Use
  Company Number: None

PATIENT
  Sex: Male

DRUGS (2)
  1. SIMVASTATIN [Suspect]
  2. DICLOFENAC SODIUM [Suspect]

REACTIONS (2)
  - Blood creatine phosphokinase increased [None]
  - Transaminases increased [None]
